FAERS Safety Report 22724564 (Version 6)
Quarter: 2023Q4

REPORT INFORMATION
  Report Type: Spontaneous
  Country: US (occurrence: US)
  Receive Date: 20230719
  Receipt Date: 20231130
  Transmission Date: 20240110
  Serious: Yes (Hospitalization)
  Sender: FDA-Public Use
  Company Number: US-ELI_LILLY_AND_COMPANY-US202307010535

PATIENT
  Sex: Female

DRUGS (10)
  1. ADCIRCA [Suspect]
     Active Substance: TADALAFIL
     Indication: Pulmonary arterial hypertension
     Dosage: 40 MG, DAILY
     Route: 048
     Dates: start: 202103
  2. REMODULIN [Suspect]
     Active Substance: TREPROSTINIL
     Indication: Pulmonary arterial hypertension
     Dosage: 56.6 NG, OTHER
     Route: 058
     Dates: start: 202111
  3. REMODULIN [Suspect]
     Active Substance: TREPROSTINIL
     Dosage: 60 NG, OTHER
     Route: 058
  4. REMODULIN [Suspect]
     Active Substance: TREPROSTINIL
     Dosage: 60.96 NG, OTHER
     Route: 058
     Dates: start: 20230819
  5. REMODULIN [Suspect]
     Active Substance: TREPROSTINIL
     Dosage: 46.667 NG/KG/MIN, OTHER (CONTINUOUS)
     Route: 058
     Dates: start: 202310
  6. REMODULIN [Suspect]
     Active Substance: TREPROSTINIL
     Dosage: 46.7 NG/KG/MIN, OTHER (CONTINUOUS)
     Route: 058
  7. REMODULIN [Suspect]
     Active Substance: TREPROSTINIL
     Dosage: 45 NG/KG/MIN, OTHER (CONTINUOUS)
     Route: 058
  8. REMODULIN [Suspect]
     Active Substance: TREPROSTINIL
     Dosage: 0.014 ML, EVERY HOUR
     Route: 058
  9. REMODULIN [Suspect]
     Active Substance: TREPROSTINIL
     Dosage: 0.012 ML, EVERY HOUR
     Route: 058
     Dates: start: 20231114
  10. AMBRISENTAN [Concomitant]
     Active Substance: AMBRISENTAN
     Indication: Product used for unknown indication
     Dosage: UNK, UNKNOWN

REACTIONS (9)
  - Respiratory tract infection [Unknown]
  - Eye disorder [Unknown]
  - Glassy eyes [Unknown]
  - Decreased appetite [Unknown]
  - Pain [Unknown]
  - Diarrhoea [Unknown]
  - Headache [Unknown]
  - Heart rate increased [Unknown]
  - Dyspnoea [Not Recovered/Not Resolved]
